FAERS Safety Report 24227262 (Version 1)
Quarter: 2024Q3

REPORT INFORMATION
  Report Type: Spontaneous
  Country: GE (occurrence: GE)
  Receive Date: 20240820
  Receipt Date: 20240820
  Transmission Date: 20241017
  Serious: Yes (Other)
  Sender: PFIZER
  Company Number: GE-PFIZER INC-PV202400107526

PATIENT
  Age: 44 Year
  Sex: Male

DRUGS (7)
  1. MEDROL [Suspect]
     Active Substance: METHYLPREDNISOLONE
     Indication: Immunosuppressant drug therapy
     Dosage: 4 MG (MAINTAINED)
  2. TACROLIMUS [Suspect]
     Active Substance: TACROLIMUS
     Indication: Immunosuppressant drug therapy
     Dosage: UNK
  3. TACROLIMUS [Suspect]
     Active Substance: TACROLIMUS
     Dosage: 5 TO 6.5 NG/ML
  4. TACROLIMUS [Suspect]
     Active Substance: TACROLIMUS
     Dosage: 3 TO 5 NG/ML
  5. MYCOPHENOLATE MOFETIL [Suspect]
     Active Substance: MYCOPHENOLATE MOFETIL
     Indication: Immunosuppressant drug therapy
  6. CYCLOSPORINE [Suspect]
     Active Substance: CYCLOSPORINE
     Indication: Immunosuppressant drug therapy
     Dosage: 20-30 NG/ML
  7. EVEROLIMUS [Concomitant]
     Active Substance: EVEROLIMUS
     Dosage: 3 TO 8 NG/ ML

REACTIONS (1)
  - Oropharyngeal squamous cell carcinoma [Unknown]
